FAERS Safety Report 10585989 (Version 1)
Quarter: 2014Q4

REPORT INFORMATION
  Report Type: Spontaneous
  Country: US (occurrence: US)
  Receive Date: 20141114
  Receipt Date: 20141114
  Transmission Date: 20150529
  Serious: Yes (Hospitalization)
  Sender: FDA-Public Use
  Company Number: US-SA-2014SA131272

PATIENT
  Age: 56 Year
  Sex: Female
  Weight: 53.3 kg

DRUGS (14)
  1. KEFLEX [Concomitant]
     Active Substance: CEPHALEXIN
  2. GLIPIZIDE. [Concomitant]
     Active Substance: GLIPIZIDE
  3. LEVOTHYROXINE [Concomitant]
     Active Substance: LEVOTHYROXINE
  4. LOVENOX [Concomitant]
     Active Substance: ENOXAPARIN SODIUM
  5. COMPAZINE [Concomitant]
     Active Substance: PROCHLORPERAZINE MALEATE
  6. EMLA [Concomitant]
     Active Substance: LIDOCAINE\PRILOCAINE
  7. ATIVAN [Concomitant]
     Active Substance: LORAZEPAM
  8. VITAMIN D3 [Concomitant]
     Active Substance: CHOLECALCIFEROL
  9. AFLIBERCEPT [Suspect]
     Active Substance: AFLIBERCEPT
     Indication: GASTRIC CANCER
     Route: 042
     Dates: start: 20140911, end: 20140911
  10. BACTRIM DS [Concomitant]
     Active Substance: SULFAMETHOXAZOLE\TRIMETHOPRIM
  11. FISH OIL [Concomitant]
     Active Substance: FISH OIL
  12. METFORMIN [Concomitant]
     Active Substance: METFORMIN HYDROCHLORIDE
  13. OMEPRAZOLE. [Concomitant]
     Active Substance: OMEPRAZOLE
  14. ZOFRAN [Concomitant]
     Active Substance: ONDANSETRON HYDROCHLORIDE

REACTIONS (5)
  - Tachycardia [Unknown]
  - Catheter site related reaction [Recovered/Resolved]
  - Pulmonary embolism [Unknown]
  - Pyrexia [Unknown]
  - Catheter site swelling [Recovered/Resolved]

NARRATIVE: CASE EVENT DATE: 20140913
